FAERS Safety Report 5058035-4 (Version None)
Quarter: 2006Q3

REPORT INFORMATION
  Report Type: 
  Country: None (occurrence: None)
  Receive Date: 20060721
  Receipt Date: 20060710
  Transmission Date: 20061208
  Serious: Yes (Hospitalization)
  Sender: FDA-Public Use
  Company Number: BR-ROCHE-454642

PATIENT
  Age: 36 Year
  Sex: Male
  Weight: 44.4 kg

DRUGS (8)
  1. PEG-INTERFERON ALFA 2A (RO 25-8310) [Suspect]
     Dosage: DOSAGE FORM REPORTED AS VIALS.
     Route: 058
     Dates: start: 20050601, end: 20060329
  2. PROPRANOLOL [Concomitant]
     Dates: start: 19960615
  3. NIFEDIPINE [Concomitant]
     Dates: start: 19960615
  4. VITAMINE D [Concomitant]
     Dates: start: 19960615
  5. EPOGEN [Concomitant]
     Dates: start: 19960615
  6. IRON [Concomitant]
     Route: 051
     Dates: start: 19960615
  7. DIPIRONE [Concomitant]
     Dates: start: 20050602
  8. CYSTOPURIN [Concomitant]
     Dates: start: 19960615

REACTIONS (1)
  - BRONCHITIS ACUTE [None]
